FAERS Safety Report 12245257 (Version 1)
Quarter: 2016Q2

REPORT INFORMATION
  Report Type: Spontaneous
  Country: US (occurrence: US)
  Receive Date: 20160407
  Receipt Date: 20160407
  Transmission Date: 20160815
  Serious: No
  Sender: FDA-Public Use
  Company Number: US-PFIZER INC-2016162807

PATIENT
  Age: 57 Year
  Sex: Female

DRUGS (18)
  1. IBRANCE [Suspect]
     Active Substance: PALBOCICLIB
     Indication: BREAST CANCER FEMALE
     Dosage: 100 MG, DAILY
     Route: 048
     Dates: start: 20160104
  2. GRAPE SEED [Concomitant]
  3. MILK THISTLE [Concomitant]
     Active Substance: MILK THISTLE
  4. SODIUM BICARBONATE. [Concomitant]
     Active Substance: SODIUM BICARBONATE
  5. TURMERIC [Concomitant]
     Active Substance: TURMERIC
  6. HAWTHORN [Concomitant]
     Active Substance: CRATAEGUS LAEVIGATA FRUIT
  7. RED YEAST RICE [Concomitant]
     Active Substance: DIETARY SUPPLEMENT
  8. VICODIN [Concomitant]
     Active Substance: ACETAMINOPHEN\HYDROCODONE BITARTRATE
  9. DIAZEPAM. [Concomitant]
     Active Substance: DIAZEPAM
  10. FASLODEX [Concomitant]
     Active Substance: FULVESTRANT
  11. VITAMIN C [Concomitant]
     Active Substance: ASCORBIC ACID
  12. ACAL [Concomitant]
  13. GINGER. [Concomitant]
     Active Substance: GINGER
  14. IBUPROFEN. [Concomitant]
     Active Substance: IBUPROFEN
  15. LUTEIN [Concomitant]
     Active Substance: LUTEIN
  16. OMEGA 3 [Concomitant]
     Active Substance: OMEGA-3 FATTY ACIDS
  17. CALCIUM+D [Concomitant]
  18. ASPIRIN. [Concomitant]
     Active Substance: ASPIRIN

REACTIONS (3)
  - Paraesthesia [Unknown]
  - Nausea [Unknown]
  - Balance disorder [Unknown]
